FAERS Safety Report 7251492-4 (Version None)
Quarter: 2011Q1

REPORT INFORMATION
  Report Type: 
  Country: None (occurrence: None)
  Receive Date: 20110128
  Receipt Date: 20110121
  Transmission Date: 20110831
  Serious: Yes (Hospitalization)
  Sender: FDA-Public Use
  Company Number: PHHO2010CA18713

PATIENT
  Sex: Female
  Weight: 55 kg

DRUGS (4)
  1. DILTIAZEM [Concomitant]
  2. DETROL [Concomitant]
  3. IMATINIB [Suspect]
     Indication: CHRONIC MYELOID LEUKAEMIA
     Dosage: 400 MG, QD
     Route: 048
     Dates: start: 19990101
  4. HYDROCHLOROTHIAZIDE [Concomitant]

REACTIONS (5)
  - CAST APPLICATION [None]
  - ANKLE FRACTURE [None]
  - HYPOKALAEMIA [None]
  - FALL [None]
  - SYNCOPE [None]
